FAERS Safety Report 24713064 (Version 1)
Quarter: 2024Q4

REPORT INFORMATION
  Report Type: Spontaneous
  Country: TW (occurrence: TW)
  Receive Date: 20241209
  Receipt Date: 20241209
  Transmission Date: 20250115
  Serious: Yes (Hospitalization)
  Sender: JOHNSON AND JOHNSON
  Company Number: TW-JNJFOC-20241212023

PATIENT
  Age: 57 Year
  Sex: Male

DRUGS (1)
  1. RYBREVANT [Suspect]
     Active Substance: AMIVANTAMAB-VMJW
     Indication: Lung carcinoma cell type unspecified recurrent
     Route: 065
     Dates: start: 20200206

REACTIONS (2)
  - Folliculitis [Recovered/Resolved]
  - Excessive granulation tissue [Recovered/Resolved]
